FAERS Safety Report 6368576-5 (Version None)
Quarter: 2009Q3

REPORT INFORMATION
  Report Type: 
  Country: None (occurrence: None)
  Receive Date: 20090922
  Receipt Date: 20090326
  Transmission Date: 20100115
  Serious: No
  Sender: FDA-Public Use
  Company Number: US-BRISTOL-MYERS SQUIBB COMPANY-14547145

PATIENT
  Age: 64 Year
  Sex: Female
  Weight: 68 kg

DRUGS (21)
  1. BUSPAR [Suspect]
     Indication: HYPERTENSION
     Dosage: 1DF=1/2 TABLET DOSE REDUCED TO 2.5MG,BID
     Route: 048
     Dates: start: 20090221
  2. LANOXIN [Concomitant]
  3. INSPRA [Concomitant]
  4. TORSEMIDE [Concomitant]
  5. LABETALOL HCL [Concomitant]
  6. CLONIDINE [Concomitant]
  7. GLUCOTROL [Concomitant]
  8. GLUCOPHAGE [Concomitant]
  9. PLAVIX [Concomitant]
  10. VYTORIN [Concomitant]
  11. XANAX [Concomitant]
  12. FOLIC ACID [Concomitant]
  13. NIACIN [Concomitant]
  14. COENZYME Q10 [Concomitant]
  15. IRON [Concomitant]
  16. MULTI-VITAMIN [Concomitant]
  17. VITAMIN D [Concomitant]
  18. THIAMINE HCL [Concomitant]
  19. ASPIRIN [Concomitant]
  20. NITROSTAT [Concomitant]
  21. VICODIN [Concomitant]

REACTIONS (1)
  - BLOOD GLUCOSE INCREASED [None]
